FAERS Safety Report 9257156 (Version 2)
Quarter: 2013Q2

REPORT INFORMATION
  Report Type: Report from Study
  Country: US (occurrence: US)
  Receive Date: 20130426
  Receipt Date: 20130508
  Transmission Date: 20140414
  Serious: Yes (Hospitalization)
  Sender: FDA-Public Use
  Company Number: US-GENZYME-MOZO-1000845

PATIENT
  Age: 32 Year
  Sex: Male
  Weight: 65.1 kg

DRUGS (28)
  1. MOZOBIL [Suspect]
     Indication: HAEMATOPOIETIC STEM CELL MOBILISATION
     Dosage: ONCE (SINGLE IV INFUSION)
     Route: 042
     Dates: start: 20130103, end: 20130103
  2. MOZOBIL [Suspect]
     Indication: ACUTE MYELOID LEUKAEMIA
  3. LEUKINE [Suspect]
     Indication: HAEMATOPOIETIC STEM CELL MOBILISATION
     Dosage: ONCE (SINGLE IV INFUSION)
     Route: 042
     Dates: start: 20130103, end: 20130103
  4. LEUKINE [Suspect]
     Indication: ACUTE MYELOID LEUKAEMIA
  5. CARFILZOMIB [Concomitant]
     Indication: ACUTE MYELOID LEUKAEMIA
     Dosage: UNK
     Route: 065
  6. POSACONAZOLE [Concomitant]
     Indication: ABSCESS FUNGAL
     Dosage: 400 MG, BID
     Route: 065
  7. CIPROFLOXACIN [Concomitant]
     Indication: ABSCESS FUNGAL
     Dosage: 500 MG, BID
     Route: 065
  8. ENTECAVIR [Concomitant]
     Indication: HEPATITIS B
     Dosage: UNK
     Route: 065
  9. ENTECAVIR [Concomitant]
     Indication: HEPATITIS C
  10. ACTIGALL [Concomitant]
     Indication: HEPATITIS B
     Dosage: 300 MG, BID
     Route: 065
  11. ACTIGALL [Concomitant]
     Indication: HEPATITIS C
  12. ACETAMINOPHEN [Concomitant]
     Indication: PRODUCT USED FOR UNKNOWN INDICATION
     Dosage: 325 MG, QID, PRN
     Route: 065
  13. ACYCLOVIR [Concomitant]
     Indication: PRODUCT USED FOR UNKNOWN INDICATION
     Dosage: 400 MG, TID
  14. ATIVAN [Concomitant]
     Indication: PRODUCT USED FOR UNKNOWN INDICATION
     Dosage: 1 MG, QID, PRN
     Route: 065
  15. AUGMENTIN [Concomitant]
     Indication: PRODUCT USED FOR UNKNOWN INDICATION
     Dosage: 875 MG-125 MG, BID
     Route: 065
  16. BACLOFEN [Concomitant]
     Indication: PRODUCT USED FOR UNKNOWN INDICATION
     Dosage: 10 MG, QD, QHS, PRN
     Route: 065
  17. BARACLUDE [Concomitant]
     Indication: PRODUCT USED FOR UNKNOWN INDICATION
     Dosage: 0.5 MG, BID
     Route: 065
  18. CELEXA [Concomitant]
     Indication: PRODUCT USED FOR UNKNOWN INDICATION
     Dosage: 10 MG, QD
     Route: 065
  19. COLACE [Concomitant]
     Indication: PRODUCT USED FOR UNKNOWN INDICATION
     Dosage: 100 MG, BID
     Route: 065
  20. DAPSONE [Concomitant]
     Indication: PRODUCT USED FOR UNKNOWN INDICATION
     Dosage: 100 MG, QD
     Route: 065
  21. ESOMEPRAZOLE [Concomitant]
     Indication: PRODUCT USED FOR UNKNOWN INDICATION
     Dosage: 40 MG, QD
     Route: 065
  22. GABAPENTIN [Concomitant]
     Indication: PRODUCT USED FOR UNKNOWN INDICATION
     Dosage: 600 MG, TID
     Route: 065
  23. MIRALAX [Concomitant]
     Indication: PRODUCT USED FOR UNKNOWN INDICATION
     Dosage: 17 G, QD
     Route: 065
  24. ANTIBIOTICS [Concomitant]
     Indication: PYREXIA
     Dosage: UNK
     Route: 065
  25. MS CONTIN [Concomitant]
     Indication: PRODUCT USED FOR UNKNOWN INDICATION
     Dosage: 100 MG, TID,EXTENDED RELEASE
     Route: 065
  26. MS CONTIN [Concomitant]
     Dosage: 15 MG, TID
     Route: 065
  27. VANCOMYCIN [Concomitant]
     Indication: PYREXIA
     Dosage: UNK
     Route: 065
  28. CEFEPIME [Concomitant]
     Indication: PYREXIA
     Dosage: UNK
     Route: 065

REACTIONS (3)
  - Oedema peripheral [Unknown]
  - Arthralgia [Unknown]
  - Abdominal pain [Unknown]
